FAERS Safety Report 6848610-6 (Version None)
Quarter: 2010Q3

REPORT INFORMATION
  Report Type: 
  Country: None (occurrence: None)
  Receive Date: 20100716
  Receipt Date: 20100705
  Transmission Date: 20110219
  Serious: Yes (Other)
  Sender: FDA-Public Use
  Company Number: GB-PFIZER INC-2009237406

PATIENT
  Age: 45 Year
  Sex: Female

DRUGS (3)
  1. FLUCONAZOLE [Suspect]
     Indication: VULVOVAGINAL CANDIDIASIS
     Dosage: 200 MG, 1X/DAY
     Route: 048
  2. AMPHOTERICIN B [Suspect]
     Indication: VULVOVAGINAL CANDIDIASIS
     Dosage: 100 MG, 1X/DAY
     Route: 061
  3. FLUCYTOSINE [Suspect]
     Indication: VULVOVAGINAL CANDIDIASIS
     Dosage: 1 G, 1X/DAY
     Route: 061

REACTIONS (2)
  - DRUG INEFFECTIVE [None]
  - MULTIPLE-DRUG RESISTANCE [None]
